FAERS Safety Report 15964844 (Version 1)
Quarter: 2019Q1

REPORT INFORMATION
  Report Type: Spontaneous
  Country: FR (occurrence: FR)
  Receive Date: 20190215
  Receipt Date: 20190215
  Transmission Date: 20190418
  Serious: Yes (Other)
  Sender: FDA-Public Use
  Company Number: FR-TEVA-2019-FR-1010148

PATIENT
  Age: 63 Year
  Sex: Male
  Weight: 69 kg

DRUGS (15)
  1. KETOPROFENE [Suspect]
     Active Substance: KETOPROFEN
     Indication: PRODUCT USED FOR UNKNOWN INDICATION
     Dosage: 200 MILLIGRAM DAILY;
     Route: 048
     Dates: end: 201804
  2. AUGMENTIN [Suspect]
     Active Substance: AMOXICILLIN\CLAVULANATE POTASSIUM
     Indication: INFECTION
     Dosage: 3 DOSAGE FORMS DAILY;
     Route: 048
     Dates: start: 20180409, end: 20180412
  3. SPASFON [Concomitant]
     Dosage: 6 DOSAGE FORMS DAILY;
     Route: 048
  4. TRAMADOL BASE [Suspect]
     Active Substance: TRAMADOL
     Indication: PAIN
     Dosage: 150 MILLIGRAM DAILY;
     Route: 048
     Dates: end: 201804
  5. LOXAPAC 50 MG, COMPRIM? PELLICUL? [Concomitant]
     Active Substance: LOXAPINE SUCCINATE
     Indication: SCHIZOPHRENIA
     Dosage: 3 DOSAGE FORMS DAILY;
     Route: 048
  6. TEMESTA 1 MG, COMPRIM? S?CABLE [Concomitant]
     Active Substance: LORAZEPAM
     Indication: SCHIZOPHRENIA
     Dosage: 3 DOSAGE FORMS DAILY;
     Route: 048
     Dates: end: 201804
  7. LEPTICUR 10 MG, COMPRIM? [Concomitant]
     Active Substance: TROPATEPINE HYDROCHLORIDE
     Dosage: 2 DOSAGE FORMS DAILY;
     Route: 048
  8. THIOCOLCHICOSIDE [Suspect]
     Active Substance: THIOCOLCHICOSIDE
     Indication: MUSCLE SPASMS
     Dosage: 4 MILLIGRAM DAILY;
     Route: 048
     Dates: end: 201804
  9. VALPROATE DE SODIUM [Concomitant]
     Active Substance: VALPROATE SODIUM
     Indication: SCHIZOPHRENIA
     Dosage: 1500 MILLIGRAM DAILY;
     Route: 048
     Dates: end: 201804
  10. CLOPIXOL ACTION PROLONGEE 200 MG/1 ML, SOLUTION INJECTABLE I.M. [Concomitant]
     Indication: SCHIZOPHRENIA
     Route: 030
  11. PAROXETINE. [Concomitant]
     Active Substance: PAROXETINE
     Indication: SCHIZOPHRENIA
     Route: 048
     Dates: end: 201804
  12. HALDOL [Concomitant]
     Active Substance: HALOPERIDOL
     Indication: SCHIZOPHRENIA
     Dosage: 2 DOSAGE FORMS DAILY;
     Route: 048
     Dates: end: 201804
  13. DOLIPRANE [Concomitant]
     Active Substance: ACETAMINOPHEN
     Indication: PAIN
     Dosage: 3 DOSAGE FORMS DAILY;
     Route: 048
     Dates: end: 201804
  14. LARGACTIL 25 MG, COMPRIM? PELLICUL? S?CABLE [Concomitant]
     Active Substance: CHLORPROMAZINE HYDROCHLORIDE
     Indication: SCHIZOPHRENIA
     Dosage: 2 DOSAGE FORMS DAILY;
     Route: 048
     Dates: end: 201804
  15. PANTOPRAZOLE [Concomitant]
     Active Substance: PANTOPRAZOLE
     Dosage: 20 MILLIGRAM DAILY;
     Route: 048

REACTIONS (1)
  - Hepatocellular injury [Recovered/Resolved]

NARRATIVE: CASE EVENT DATE: 20180411
